FAERS Safety Report 19588437 (Version 1)
Quarter: 2021Q3

REPORT INFORMATION
  Report Type: Report from Study
  Country: ES (occurrence: ES)
  Receive Date: 20210721
  Receipt Date: 20210721
  Transmission Date: 20211014
  Serious: Yes (Hospitalization, Other)
  Sender: FDA-Public Use
  Company Number: ES-TAKEDA-2021TUS044011

PATIENT
  Age: 3 Year
  Sex: Female

DRUGS (8)
  1. TEDUGLUTIDE [Suspect]
     Active Substance: TEDUGLUTIDE
     Indication: SHORT-BOWEL SYNDROME
     Dosage: 0.4 MILLIGRAM (0.05 MG/KG DAILY DOSE), 7 DOSES PER WEEK
     Route: 065
     Dates: start: 20190723
  2. TEDUGLUTIDE [Suspect]
     Active Substance: TEDUGLUTIDE
     Indication: SHORT-BOWEL SYNDROME
     Dosage: 0.4 MILLIGRAM (0.05 MG/KG DAILY DOSE), 7 DOSES PER WEEK
     Route: 065
     Dates: start: 20190723
  3. TEDUGLUTIDE [Suspect]
     Active Substance: TEDUGLUTIDE
     Indication: SHORT-BOWEL SYNDROME
     Dosage: 0.4 MILLIGRAM (0.05 MG/KG DAILY DOSE), 7 DOSES PER WEEK
     Route: 065
     Dates: start: 20190723
  4. METRONIDAZOL [Concomitant]
     Active Substance: METRONIDAZOLE
     Indication: OVERGROWTH BACTERIAL
     Dosage: 62.50 MILLIGRAM, BID
     Route: 048
     Dates: start: 20191128, end: 202004
  5. HIBOR [Concomitant]
     Indication: THROMBOSIS
     Dosage: 1000 INTERNATIONAL UNIT, QD
     Route: 058
     Dates: start: 201808
  6. TEDUGLUTIDE [Suspect]
     Active Substance: TEDUGLUTIDE
     Indication: SHORT-BOWEL SYNDROME
     Dosage: 0.4 MILLIGRAM (0.05 MG/KG DAILY DOSE), 7 DOSES PER WEEK
     Route: 065
     Dates: start: 20190723
  7. VITAMINA D3 [Concomitant]
     Active Substance: CHOLECALCIFEROL
     Indication: VITAMIN D DEFICIENCY
     Dosage: 400 INTERNATIONAL UNIT, QD
     Route: 048
     Dates: start: 2017
  8. SEPTRIN [Concomitant]
     Active Substance: SULFAMETHOXAZOLE\TRIMETHOPRIM
     Indication: OVERGROWTH BACTERIAL
     Dosage: 20 MILLIGRAM, BID
     Route: 048
     Dates: start: 20191128, end: 202004

REACTIONS (1)
  - Gastroenteritis [Recovered/Resolved]

NARRATIVE: CASE EVENT DATE: 20210123
